FAERS Safety Report 25785328 (Version 1)
Quarter: 2025Q3

REPORT INFORMATION
  Report Type: Spontaneous
  Country: US (occurrence: US)
  Receive Date: 20250910
  Receipt Date: 20250910
  Transmission Date: 20251020
  Serious: No
  Sender: ROCHE
  Company Number: US-ROCHE-10000378642

PATIENT
  Age: 16 Year
  Sex: Male
  Weight: 66.67 kg

DRUGS (7)
  1. XOLAIR PFS [Suspect]
     Active Substance: OMALIZUMAB
     Indication: Urticaria
     Route: 058
     Dates: start: 2024
  2. XOLAIR PFS [Suspect]
     Active Substance: OMALIZUMAB
     Dosage: 300MG IN THE FORM OF 2 XOLAIR 150MG PPFS
     Route: 058
     Dates: start: 20240401, end: 2024
  3. XOLAIR [Suspect]
     Active Substance: OMALIZUMAB
     Indication: Urticaria
     Route: 058
     Dates: start: 20240401, end: 2024
  4. XOLAIR [Suspect]
     Active Substance: OMALIZUMAB
  5. BENADRYL [Concomitant]
     Active Substance: DIPHENHYDRAMINE HYDROCHLORIDE
  6. CLARITIN [Concomitant]
     Active Substance: LORATADINE
  7. EPIPEN [Concomitant]
     Active Substance: EPINEPHRINE

REACTIONS (4)
  - Incorrect dose administered [Unknown]
  - Device malfunction [Unknown]
  - Device issue [Unknown]
  - No adverse event [Unknown]

NARRATIVE: CASE EVENT DATE: 20250828
